FAERS Safety Report 11739711 (Version 1)
Quarter: 2015Q4

REPORT INFORMATION
  Report Type: Spontaneous
  Country: US (occurrence: US)
  Receive Date: 20151113
  Receipt Date: 20151113
  Transmission Date: 20160304
  Serious: Yes (Hospitalization, Other)
  Sender: FDA-Public Use
  Company Number: US-TEVA-607151USA

PATIENT
  Sex: Male

DRUGS (1)
  1. COPAXONE [Suspect]
     Active Substance: GLATIRAMER ACETATE
     Indication: MULTIPLE SCLEROSIS
     Dosage: UNKNOWN FORM STRENGTH
     Route: 058

REACTIONS (6)
  - Hemiplegia [Recovered/Resolved]
  - Adverse event [Unknown]
  - Arthralgia [Unknown]
  - Joint swelling [Unknown]
  - Road traffic accident [Unknown]
  - Balance disorder [Unknown]

NARRATIVE: CASE EVENT DATE: 2007
